FAERS Safety Report 7382205-3 (Version None)
Quarter: 2011Q1

REPORT INFORMATION
  Report Type: 
  Country: None (occurrence: None)
  Receive Date: 20110329
  Receipt Date: 20101227
  Transmission Date: 20110831
  Serious: No
  Sender: FDA-Public Use
  Company Number: US-BAYER-2011-024670

PATIENT
  Sex: Female
  Weight: 72.562 kg

DRUGS (1)
  1. ALEVE (CAPLET) [Suspect]
     Indication: BACK PAIN
     Dosage: 440 MG AND 220 MG ONE AND HALF HOUR LATER, BOTTLE COUNT 24S
     Route: 048
     Dates: start: 20101227

REACTIONS (1)
  - FEELING JITTERY [None]
